FAERS Safety Report 5975871-8 (Version None)
Quarter: 2008Q4

REPORT INFORMATION
  Report Type: 
  Country: None (occurrence: None)
  Receive Date: 20081202
  Receipt Date: 20081128
  Transmission Date: 20090506
  Serious: Yes (Life-Threatening, Other)
  Sender: FDA-Public Use
  Company Number: B0547151A

PATIENT
  Age: 77 Year
  Sex: Female

DRUGS (6)
  1. ARIXTRA [Suspect]
     Indication: THROMBOSIS PROPHYLAXIS
     Dosage: 2.5MG PER DAY
     Route: 058
     Dates: start: 20080823, end: 20080828
  2. LOXONIN [Suspect]
     Indication: ANALGESIA
     Route: 048
     Dates: start: 20080822, end: 20080828
  3. MUCOSTA [Concomitant]
     Route: 048
     Dates: start: 20080822
  4. GASTROM [Concomitant]
     Dosage: 1.5G PER DAY
     Route: 048
     Dates: start: 20080828
  5. HYPEN [Concomitant]
     Indication: ANALGESIA
     Route: 048
     Dates: start: 20080828
  6. ALLOID G [Concomitant]
     Route: 048
     Dates: start: 20080828

REACTIONS (3)
  - FAECES DISCOLOURED [None]
  - GASTRIC ULCER HAEMORRHAGE [None]
  - PALLOR [None]
